FAERS Safety Report 6759895-9 (Version None)
Quarter: 2010Q2

REPORT INFORMATION
  Report Type: 
  Country: None (occurrence: None)
  Receive Date: 20100608
  Receipt Date: 20100527
  Transmission Date: 20101027
  Serious: Yes (Other)
  Sender: FDA-Public Use
  Company Number: AU-JNJFOC-20100601084

PATIENT
  Age: 66 Year
  Sex: Male

DRUGS (6)
  1. INFLIXIMAB [Suspect]
     Indication: PYODERMA GANGRENOSUM
     Dosage: WEEKS 0, 2, AND 6
     Route: 042
  2. BETAMETHASONE DIPROPIONATE [Concomitant]
     Indication: PYODERMA GANGRENOSUM
     Route: 061
  3. PREDNISOLONE [Concomitant]
     Indication: PYODERMA GANGRENOSUM
     Route: 048
  4. CYCLOSPORINE [Concomitant]
     Indication: PYODERMA GANGRENOSUM
     Route: 048
  5. MYCOPHENOLATE MOFETIL [Concomitant]
     Indication: PYODERMA GANGRENOSUM
     Route: 048
  6. IMMUNE GLOBULIN NOS [Concomitant]
     Indication: PYODERMA GANGRENOSUM
     Route: 042

REACTIONS (2)
  - FUNGAL INFECTION [None]
  - HERPES SIMPLEX [None]
